FAERS Safety Report 4360489-3 (Version None)
Quarter: 2004Q2

REPORT INFORMATION
  Report Type: 
  Country: None (occurrence: None)
  Receive Date: 20040514
  Receipt Date: 20040428
  Transmission Date: 20050107
  Serious: Yes (Hospitalization)
  Sender: FDA-Public Use
  Company Number: 195771

PATIENT
  Age: 39 Year
  Sex: Female
  Weight: 87.5442 kg

DRUGS (3)
  1. AVONEX [Suspect]
     Indication: MULTIPLE SCLEROSIS
     Dosage: 30 MCG QW IM
     Route: 030
     Dates: start: 20030724, end: 20030807
  2. ENALAPRIL MALEASTE [Concomitant]
  3. THYROID MEDICATION [Concomitant]

REACTIONS (5)
  - BLOOD GLUCOSE DECREASED [None]
  - CONDITION AGGRAVATED [None]
  - DYSPHAGIA [None]
  - MOYAMOYA DISEASE [None]
  - TEMPOROMANDIBULAR JOINT SYNDROME [None]
